FAERS Safety Report 19275734 (Version 1)
Quarter: 2021Q2

REPORT INFORMATION
  Report Type: Spontaneous
  Country: DK (occurrence: DK)
  Receive Date: 20210519
  Receipt Date: 20210519
  Transmission Date: 20210717
  Serious: Yes (Other)
  Sender: FDA-Public Use
  Company Number: DK-PFIZER INC-2021526193

PATIENT
  Age: 11 Year
  Sex: Female

DRUGS (1)
  1. SULFASALAZINE. [Suspect]
     Active Substance: SULFASALAZINE
     Indication: SARCOIDOSIS
     Dosage: UNK

REACTIONS (2)
  - Pulmonary fibrosis [Unknown]
  - Off label use [Unknown]
